FAERS Safety Report 9412022 (Version 2)
Quarter: 2013Q3

REPORT INFORMATION
  Report Type: Spontaneous
  Country: US (occurrence: US)
  Receive Date: 20130722
  Receipt Date: 20130913
  Transmission Date: 20140515
  Serious: Yes (Other)
  Sender: FDA-Public Use
  Company Number: US-JNJFOC-20130706884

PATIENT
  Age: 36 Year
  Sex: Male
  Weight: 90.72 kg

DRUGS (6)
  1. STELARA [Suspect]
     Indication: PSORIASIS
     Route: 058
     Dates: start: 20130823
  2. STELARA [Suspect]
     Indication: PSORIASIS
     Route: 058
     Dates: start: 20130612
  3. CEFTIN [Concomitant]
     Indication: PRODUCT USED FOR UNKNOWN INDICATION
     Route: 065
  4. LEXAPRO [Concomitant]
     Route: 048
  5. NEXIUM [Concomitant]
     Route: 048
  6. XANAX [Concomitant]
     Route: 048

REACTIONS (1)
  - West Nile viral infection [Recovered/Resolved]
